FAERS Safety Report 11348665 (Version 1)
Quarter: 2015Q3

REPORT INFORMATION
  Report Type: Report from Study
  Country: US (occurrence: US)
  Receive Date: 20150806
  Receipt Date: 20150806
  Transmission Date: 20151125
  Serious: Yes (Hospitalization, Disabling, Other)
  Sender: FDA-Public Use
  Company Number: PHEH2015US010475

PATIENT
  Age: 65 Year
  Sex: Female
  Weight: 80.68 kg

DRUGS (1)
  1. GILENYA [Suspect]
     Active Substance: FINGOLIMOD HYDROCHLORIDE
     Indication: MULTIPLE SCLEROSIS
     Dosage: 0.5 MG, QD
     Route: 048
     Dates: start: 20150528, end: 20150723

REACTIONS (13)
  - Eye pain [Recovered/Resolved]
  - Hypotension [Recovered/Resolved]
  - Constipation [Recovered/Resolved]
  - Haemorrhage [Recovered/Resolved]
  - Ventricular extrasystoles [Unknown]
  - Chills [Recovered/Resolved]
  - Diarrhoea [Recovered/Resolved]
  - Cough [Recovered/Resolved]
  - Oropharyngeal pain [Recovered/Resolved]
  - Sinus bradycardia [Recovered/Resolved]
  - Bundle branch block right [Unknown]
  - Right ventricular hypertrophy [Unknown]
  - Atrial fibrillation [Unknown]

NARRATIVE: CASE EVENT DATE: 20150528
